FAERS Safety Report 17443822 (Version 1)
Quarter: 2020Q1

REPORT INFORMATION
  Report Type: Spontaneous
  Country: US (occurrence: US)
  Receive Date: 20200220
  Receipt Date: 20200220
  Transmission Date: 20200409
  Serious: No
  Sender: FDA-Public Use
  Company Number: None

PATIENT
  Age: 69 Year
  Sex: Male
  Weight: 77.85 kg

DRUGS (2)
  1. VALSARTAN 160 MG TABLETS, 160 MG SOLCO [Suspect]
     Active Substance: VALSARTAN
     Indication: HYPERTENSION
     Dosage: ?          QUANTITY:1 TABLET(S);?
     Route: 048
  2. HYDROCHLORIDE THIAZIDES 12.5MG [Concomitant]

REACTIONS (2)
  - Cardiac murmur [None]
  - Paraesthesia [None]

NARRATIVE: CASE EVENT DATE: 20190217
